FAERS Safety Report 7018029-6 (Version None)
Quarter: 2010Q3

REPORT INFORMATION
  Report Type: 
  Country: None (occurrence: None)
  Receive Date: 20100923
  Receipt Date: 20100908
  Transmission Date: 20110219
  Serious: Yes (Hospitalization)
  Sender: FDA-Public Use
  Company Number: AE-090810001

PATIENT
  Age: 24 Year
  Sex: Male
  Weight: 12.7007 kg

DRUGS (3)
  1. PRIMSOL SOLUTION (TRIMETHOPRIM NCI) 50 MG/5 ML [Suspect]
     Indication: CELLULITIS
     Dosage: 1 1/4 TSP BID ORAL
     Route: 048
     Dates: start: 20100827, end: 20100831
  2. TOPICAL [Concomitant]
  3. MUPIROCIN [Concomitant]

REACTIONS (1)
  - STEVENS-JOHNSON SYNDROME [None]
